FAERS Safety Report 12598325 (Version 1)
Quarter: 2016Q3

REPORT INFORMATION
  Report Type: Spontaneous
  Country: US (occurrence: None)
  Receive Date: 20160726
  Receipt Date: 20160726
  Transmission Date: 20161109
  Serious: No
  Sender: FDA-Public Use
  Company Number: None

PATIENT
  Age: 48 Year
  Sex: Female
  Weight: 46.72 kg

DRUGS (7)
  1. SINGULAIR [Concomitant]
     Active Substance: MONTELUKAST SODIUM
  2. VITAMIN B COMPLEX [Concomitant]
     Active Substance: CYANOCOBALAMIN\DEXPANTHENOL\NIACINAMIDE\PYRIDOXINE HYDROCHLORIDE\RIBOFLAVIN 5^-PHOSPHATE SODIUM\THIAMINE HYDROCHLORIDE\VITAMIN B COMPLEX
  3. ONE-A-DAY NOS [Concomitant]
     Active Substance: MINERALS\VITAMINS
  4. IMIQUIMOD, 5 MG [Suspect]
     Active Substance: IMIQUIMOD
     Indication: BASAL CELL CARCINOMA
     Dosage: 13 INDIVIDUAL PACKETS AT BEDTIME APPLIED TO A SURFACE, USUALLY THE SKIN
     Route: 061
     Dates: start: 20160705, end: 20160720
  5. CALCIUM [Concomitant]
     Active Substance: CALCIUM
  6. OCUVITES [Concomitant]
  7. ZYRTEC [Concomitant]
     Active Substance: CETIRIZINE HYDROCHLORIDE

REACTIONS (15)
  - Scab [None]
  - Application site haemorrhage [None]
  - Application site discharge [None]
  - Malaise [None]
  - Hypersensitivity [None]
  - Chest pain [None]
  - Middle insomnia [None]
  - Pyrexia [None]
  - Alopecia [None]
  - Vomiting [None]
  - Dyspnoea [None]
  - Chills [None]
  - Pain in extremity [None]
  - Pain [None]
  - Chest discomfort [None]

NARRATIVE: CASE EVENT DATE: 20160705
